FAERS Safety Report 19119065 (Version 4)
Quarter: 2021Q2

REPORT INFORMATION
  Report Type: Spontaneous
  Country: BR (occurrence: BR)
  Receive Date: 20210411
  Receipt Date: 20210630
  Transmission Date: 20210717
  Serious: Yes (Hospitalization, Other)
  Sender: FDA-Public Use
  Company Number: BR-AMGEN-BRASP2021054047

PATIENT
  Sex: Female

DRUGS (2)
  1. ENBREL [Suspect]
     Active Substance: ETANERCEPT
     Indication: RHEUMATOID ARTHRITIS
     Dosage: UNK
     Route: 065
  2. ENBREL [Suspect]
     Active Substance: ETANERCEPT
     Dosage: UNK, WEEKLY (EVERY FRIDAY)
     Route: 065

REACTIONS (4)
  - COVID-19 [Recovered/Resolved]
  - Pyrexia [Unknown]
  - Immunosuppression [Unknown]
  - Influenza [Unknown]

NARRATIVE: CASE EVENT DATE: 202011
